FAERS Safety Report 19809299 (Version 1)
Quarter: 2021Q3

REPORT INFORMATION
  Report Type: Spontaneous
  Country: US (occurrence: US)
  Receive Date: 20210909
  Receipt Date: 20210909
  Transmission Date: 20211014
  Serious: Yes (Hospitalization)
  Sender: FDA-Public Use
  Company Number: None

PATIENT
  Sex: Male

DRUGS (8)
  1. ONDANSETRON TAB 8MG [Concomitant]
     Active Substance: ONDANSETRON
     Dates: start: 20210802
  2. CLOPIDOGREL TAB 75MG [Concomitant]
  3. COLESTIPOL GRA 5GM [Concomitant]
  4. PREDNISONE TAB 10MG [Concomitant]
     Active Substance: PREDNISONE
     Dates: start: 20210802
  5. PRMETHAZINE TAB 25MG [Concomitant]
  6. ABIRATERONE ACETATE. [Suspect]
     Active Substance: ABIRATERONE ACETATE
     Indication: PROSTATE CANCER
     Route: 048
     Dates: start: 20210108
  7. MONTELUKAST [Concomitant]
     Active Substance: MONTELUKAST SODIUM
  8. PRAVASTATIN TAB 40MG [Concomitant]
     Dates: start: 20210824

REACTIONS (2)
  - Illness [None]
  - Diarrhoea [None]
